FAERS Safety Report 17051947 (Version 1)
Quarter: 2019Q4

REPORT INFORMATION
  Report Type: Spontaneous
  Country: US (occurrence: US)
  Receive Date: 20191021
  Receipt Date: 20191021
  Transmission Date: 20200122
  Serious: No
  Sender: FDA-Public Use
  Company Number: None

PATIENT
  Age: 79 Year
  Sex: Female

DRUGS (1)
  1. BETHKIS [Suspect]
     Active Substance: TOBRAMYCIN
     Indication: BRONCHIECTASIS
     Dosage: ?          OTHER DOSE:300MG/4ML;OTHER FREQUENCY:1 VIAL 2 X DAY;?
     Route: 045
     Dates: start: 20190615

REACTIONS (1)
  - Cardiac pacemaker replacement [None]

NARRATIVE: CASE EVENT DATE: 20191018
